FAERS Safety Report 12142341 (Version 3)
Quarter: 2016Q2

REPORT INFORMATION
  Report Type: Spontaneous
  Country: US (occurrence: US)
  Receive Date: 20160303
  Receipt Date: 20160511
  Transmission Date: 20160815
  Serious: Yes (Hospitalization)
  Sender: FDA-Public Use
  Company Number: US-TEVA-638721USA

PATIENT
  Sex: Male
  Weight: 68.1 kg

DRUGS (6)
  1. NUVIGIL [Suspect]
     Active Substance: ARMODAFINIL
     Indication: NARCOLEPSY
     Route: 065
     Dates: start: 2015
  2. DIAZEPAM. [Concomitant]
     Active Substance: DIAZEPAM
  3. DILTIAZEM [Concomitant]
     Active Substance: DILTIAZEM
  4. GABAPENTIN. [Concomitant]
     Active Substance: GABAPENTIN
  5. LITHIUM CARBONATE. [Concomitant]
     Active Substance: LITHIUM CARBONATE
  6. ROPINIROLE. [Concomitant]
     Active Substance: ROPINIROLE

REACTIONS (9)
  - Agitation [Unknown]
  - Disturbance in attention [Unknown]
  - Apathy [Unknown]
  - Drug ineffective [Unknown]
  - Anxiety [Unknown]
  - Asthenia [Unknown]
  - Anger [Unknown]
  - Therapy change [Unknown]
  - Activities of daily living impaired [Unknown]

NARRATIVE: CASE EVENT DATE: 2015
